FAERS Safety Report 12965448 (Version 1)
Quarter: 2016Q4

REPORT INFORMATION
  Report Type: Spontaneous
  Country: JP (occurrence: JP)
  Receive Date: 20161122
  Receipt Date: 20161122
  Transmission Date: 20170207
  Serious: Yes (Congenital Anomaly)
  Sender: FDA-Public Use
  Company Number: JP-UNICHEM LABORATORIES LIMITED-UCM201611-000262

PATIENT
  Sex: Female
  Weight: 2.06 kg

DRUGS (1)
  1. DIVALPROEX SODIUM. [Suspect]
     Active Substance: DIVALPROEX SODIUM

REACTIONS (2)
  - Foetal anticonvulsant syndrome [Unknown]
  - Foetal exposure during pregnancy [Unknown]
